FAERS Safety Report 5359775-X (Version None)
Quarter: 2007Q2

REPORT INFORMATION
  Report Type: 
  Country: None (occurrence: None)
  Receive Date: 20070616
  Receipt Date: 20070606
  Transmission Date: 20071010
  Serious: Yes (Hospitalization, Other)
  Sender: FDA-Public Use
  Company Number: BR-PFIZER INC-2007048256

PATIENT
  Sex: Male

DRUGS (2)
  1. VIAGRA [Suspect]
     Indication: ERECTILE DYSFUNCTION
     Dosage: TEXT:1/3 OF 50MG DOSE
     Route: 048
  2. LOSARTAN POTASSIUM [Concomitant]
     Route: 048

REACTIONS (2)
  - INTENTIONAL DRUG MISUSE [None]
  - PROSTATE CANCER [None]
